FAERS Safety Report 13821602 (Version 2)
Quarter: 2017Q4

REPORT INFORMATION
  Report Type: Spontaneous
  Country: US (occurrence: US)
  Receive Date: 20170801
  Receipt Date: 20171116
  Transmission Date: 20180320
  Serious: Yes (Other)
  Sender: FDA-Public Use
  Company Number: US-ASTRAZENECA-2017SE76028

PATIENT
  Age: 23402 Day
  Sex: Female

DRUGS (19)
  1. KOMBIGLYZE XR [Suspect]
     Active Substance: METFORMIN HYDROCHLORIDE\SAXAGLIPTIN HYDROCHLORIDE
     Indication: TYPE 2 DIABETES MELLITUS
     Route: 048
     Dates: start: 2013, end: 2014
  2. COLACE [Concomitant]
     Active Substance: DOCUSATE SODIUM
     Dates: start: 20140706
  3. COREG [Concomitant]
     Active Substance: CARVEDILOL
     Dates: start: 20140706
  4. ASPIRIN. [Concomitant]
     Active Substance: ASPIRIN
     Dates: start: 20140706
  5. CRESTOR [Concomitant]
     Active Substance: ROSUVASTATIN CALCIUM
     Route: 048
     Dates: start: 20140706
  6. METFORMIN [Concomitant]
     Active Substance: METFORMIN HYDROCHLORIDE
     Dates: start: 20140706
  7. FLAGYL [Concomitant]
     Active Substance: METRONIDAZOLE\METRONIDAZOLE HYDROCHLORIDE
     Dates: start: 20140706
  8. LANTUS [Concomitant]
     Active Substance: INSULIN GLARGINE
     Dosage: 10-20 UNITS
     Route: 058
     Dates: start: 20140702
  9. LEVAQUIN [Concomitant]
     Active Substance: LEVOFLOXACIN
     Dosage: 750.0MG UNKNOWN
     Dates: start: 20140706
  10. CIPROFLOXACIN. [Concomitant]
     Active Substance: CIPROFLOXACIN
     Dates: start: 20140706
  11. GABAPENTIN. [Concomitant]
     Active Substance: GABAPENTIN
     Dates: start: 20140706
  12. LOVASTATIN. [Concomitant]
     Active Substance: LOVASTATIN
     Route: 048
     Dates: start: 20150126
  13. CEPHALEXIN. [Concomitant]
     Active Substance: CEPHALEXIN
     Dates: start: 20160712
  14. KOMBIGLYZE XR [Suspect]
     Active Substance: METFORMIN HYDROCHLORIDE\SAXAGLIPTIN HYDROCHLORIDE
     Indication: TYPE 2 DIABETES MELLITUS
     Dosage: 5-500 MG, DAILY
     Route: 048
     Dates: start: 20140617
  15. TRAMADOL. [Concomitant]
     Active Substance: TRAMADOL
     Indication: PAIN
     Dosage: 50.0MG UNKNOWN
     Dates: start: 20140706
  16. NORVASC [Concomitant]
     Active Substance: AMLODIPINE BESYLATE
     Dates: start: 20140706
  17. ONGLYZA [Suspect]
     Active Substance: SAXAGLIPTIN HYDROCHLORIDE
     Indication: TYPE 2 DIABETES MELLITUS
     Route: 048
     Dates: start: 2013, end: 2014
  18. GLIMEPIRIDE. [Concomitant]
     Active Substance: GLIMEPIRIDE
     Dates: start: 20140706
  19. TIZANIDINE. [Concomitant]
     Active Substance: TIZANIDINE
     Route: 048
     Dates: start: 20150612

REACTIONS (3)
  - Cardiac failure congestive [Unknown]
  - Cardiac failure [Unknown]
  - Cardiovascular disorder [Unknown]

NARRATIVE: CASE EVENT DATE: 20140512
